FAERS Safety Report 11677011 (Version 1)
Quarter: 2015Q4

REPORT INFORMATION
  Report Type: Spontaneous
  Country: US (occurrence: US)
  Receive Date: 20151027
  Receipt Date: 20151027
  Transmission Date: 20160304
  Serious: No
  Sender: FDA-Public Use
  Company Number: US-ELI_LILLY_AND_COMPANY-US201009005701

PATIENT
  Age: 73 Year
  Sex: Female

DRUGS (5)
  1. METOPROLOL [Concomitant]
     Active Substance: METOPROLOL
     Dosage: UNK, UNKNOWN
  2. FORTEO [Suspect]
     Active Substance: TERIPARATIDE
     Indication: OSTEOPOROSIS
     Dosage: 20 UG, DAILY (1/D)
     Dates: start: 20100914, end: 20100921
  3. COUMADIN [Concomitant]
     Active Substance: WARFARIN SODIUM
  4. FORTEO [Suspect]
     Active Substance: TERIPARATIDE
     Dosage: 20 UG, DAILY (1/D)
  5. METOPROLOL [Concomitant]
     Active Substance: METOPROLOL
     Indication: ATRIAL FIBRILLATION
     Dosage: UNK, UNKNOWN

REACTIONS (16)
  - Pain in extremity [Unknown]
  - Limb discomfort [Recovering/Resolving]
  - Hypotension [Unknown]
  - Fall [Recovered/Resolved]
  - Asthenia [Recovering/Resolving]
  - Drug interaction [Unknown]
  - Pain in extremity [Not Recovered/Not Resolved]
  - Coordination abnormal [Recovering/Resolving]
  - Dizziness [Recovering/Resolving]
  - Blood calcium increased [Unknown]
  - Fatigue [Recovered/Resolved]
  - Drug dose omission [Recovered/Resolved]
  - Muscle spasms [Unknown]
  - Blood disorder [Unknown]
  - Disorientation [Recovering/Resolving]
  - Myalgia [Not Recovered/Not Resolved]

NARRATIVE: CASE EVENT DATE: 20100914
